FAERS Safety Report 4404420-0 (Version None)
Quarter: 2004Q3

REPORT INFORMATION
  Report Type: 
  Country: None (occurrence: None)
  Receive Date: 20040720
  Receipt Date: 20040707
  Transmission Date: 20050211
  Serious: Yes (Hospitalization, Other)
  Sender: FDA-Public Use
  Company Number: 2004041522

PATIENT
  Sex: Male
  Weight: 99.7913 kg

DRUGS (7)
  1. NARDIL [Suspect]
     Indication: DEPRESSION
     Dosage: 75 MG (75 MG, 1 IN 1 D), ORAL
     Route: 048
     Dates: start: 19800101, end: 20040526
  2. CLONAZEPAM [Suspect]
     Indication: ANXIETY
     Dosage: 4 MG (4 MG, 1 IN 1 D)
  3. ACETYLSALICYLIC ACID SRT [Concomitant]
  4. VITAMINS (VITAMINS) [Concomitant]
  5. ASCORBIC ACID [Concomitant]
  6. TOCOPHEROL CONCENTRATE CAP [Concomitant]
  7. MULTIVITAMINS (ASCORBIC ACID, ERGOCALCIFEROL, FOLIC ACID, NICOTINAMIDE [Concomitant]

REACTIONS (15)
  - AMNESIA [None]
  - ANORGASMIA [None]
  - CONSTIPATION [None]
  - DEPENDENCE [None]
  - DEPRESSION [None]
  - DISEASE RECURRENCE [None]
  - DRUG INEFFECTIVE [None]
  - ERECTILE DYSFUNCTION [None]
  - FEELING ABNORMAL [None]
  - FOOD INTERACTION [None]
  - MENTAL DISORDER [None]
  - OBSESSIVE-COMPULSIVE DISORDER [None]
  - SELF-MEDICATION [None]
  - SEXUAL DYSFUNCTION [None]
  - SUICIDE ATTEMPT [None]
